FAERS Safety Report 6152082-7 (Version None)
Quarter: 2009Q2

REPORT INFORMATION
  Report Type: 
  Country: None (occurrence: None)
  Receive Date: 20090409
  Receipt Date: 20090324
  Transmission Date: 20091009
  Serious: Yes (Death, Hospitalization)
  Sender: FDA-Public Use
  Company Number: 09-035

PATIENT
  Age: 73 Year
  Sex: Female

DRUGS (6)
  1. CEFUROXIME AXETIL [Suspect]
     Indication: URINARY TRACT INFECTION
     Dosage: 2 X 500 MG/DAY, ORAL
     Route: 048
  2. FUROSEMIDE [Suspect]
     Indication: HYPERTENSION
     Dosage: ORAL
     Route: 048
  3. FUROSEMIDE [Suspect]
     Indication: RENAL FAILURE CHRONIC
     Dosage: ORAL
     Route: 048
  4. LISINOPRIL [Concomitant]
  5. CALCIUM CARBONATE [Concomitant]
  6. ACETYLSALICYLIC ACID SRT [Concomitant]

REACTIONS (12)
  - ARTHRALGIA [None]
  - DRUG INTERACTION [None]
  - GENERAL PHYSICAL HEALTH DETERIORATION [None]
  - GRANULOCYTOPENIA [None]
  - KERATITIS [None]
  - LEUKOPENIA [None]
  - MALAISE [None]
  - MULTI-ORGAN FAILURE [None]
  - OESOPHAGITIS HAEMORRHAGIC [None]
  - PYREXIA [None]
  - STAPHYLOCOCCAL SEPSIS [None]
  - TOXIC EPIDERMAL NECROLYSIS [None]
